FAERS Safety Report 16368208 (Version 2)
Quarter: 2019Q2

REPORT INFORMATION
  Report Type: Spontaneous
  Country: US (occurrence: US)
  Receive Date: 20190529
  Receipt Date: 20190625
  Transmission Date: 20190711
  Serious: No
  Sender: FDA-Public Use
  Company Number: PHHY2019US123816

PATIENT

DRUGS (1)
  1. SYSTANE COMPLETE [Suspect]
     Active Substance: PROPYLENE GLYCOL
     Indication: PRODUCT USED FOR UNKNOWN INDICATION
     Route: 047

REACTIONS (3)
  - Vision blurred [Recovered/Resolved]
  - Eye irritation [Recovered/Resolved]
  - Liquid product physical issue [Unknown]

NARRATIVE: CASE EVENT DATE: 20190524
